FAERS Safety Report 23789315 (Version 2)
Quarter: 2024Q2

REPORT INFORMATION
  Report Type: Spontaneous
  Country: US (occurrence: US)
  Receive Date: 20240426
  Receipt Date: 20240509
  Transmission Date: 20240716
  Serious: Yes (Hospitalization)
  Sender: FDA-Public Use
  Company Number: US-VERTEX PHARMACEUTICALS-2024-007153

PATIENT
  Age: 12 Year
  Sex: Male

DRUGS (3)
  1. TRIKAFTA [Suspect]
     Active Substance: ELEXACAFTOR\IVACAFTOR\TEZACAFTOR
     Indication: Cystic fibrosis
     Dosage: UNK
     Route: 048
  2. TRIKAFTA [Suspect]
     Active Substance: ELEXACAFTOR\IVACAFTOR\TEZACAFTOR
     Dosage: JUST ONE ORANGE PILL
     Route: 048
  3. ALBUTEROL [Concomitant]
     Active Substance: ALBUTEROL

REACTIONS (12)
  - Liver function test abnormal [Unknown]
  - Frequent bowel movements [Unknown]
  - Insomnia [Unknown]
  - Behaviour disorder [Unknown]
  - Infective pulmonary exacerbation of cystic fibrosis [Unknown]
  - Stubbornness [Unknown]
  - Gastrointestinal disorder [Unknown]
  - Asthenia [Unknown]
  - Anger [Not Recovered/Not Resolved]
  - Screaming [Unknown]
  - COVID-19 [Unknown]
  - Depression [Unknown]
